FAERS Safety Report 21632336 (Version 1)
Quarter: 2022Q4

REPORT INFORMATION
  Report Type: Spontaneous
  Country: IR (occurrence: IR)
  Receive Date: 20221123
  Receipt Date: 20221123
  Transmission Date: 20230112
  Serious: Yes (Hospitalization)
  Sender: FDA-Public Use
  Company Number: IR-002147023-NVSC2022IR237991

PATIENT
  Sex: Female

DRUGS (9)
  1. XOLAIR [Suspect]
     Active Substance: OMALIZUMAB
     Indication: Chronic spontaneous urticaria
     Dosage: 150 MG (TWICE A MONTH),  FOR THE FIRST THREE MONTHS
  2. XOLAIR [Suspect]
     Active Substance: OMALIZUMAB
     Dosage: 150 MG (1 INJECTION PER MONTH)
  3. XOLAIR [Suspect]
     Active Substance: OMALIZUMAB
     Dosage: UNK
     Dates: end: 202205
  4. XOLAIR [Suspect]
     Active Substance: OMALIZUMAB
     Dosage: 2 INJECTIONS IN THE FIRST MONTH
     Route: 065
  5. XOLAIR [Suspect]
     Active Substance: OMALIZUMAB
     Dosage: 150 MG
     Route: 065
  6. FAMOTIDINE [Concomitant]
     Active Substance: FAMOTIDINE
     Indication: Product used for unknown indication
     Dosage: UNK, QD
  7. FEXOFENADINE [Concomitant]
     Active Substance: FEXOFENADINE HYDROCHLORIDE
     Indication: Chronic spontaneous urticaria
     Dosage: 180 MG, BID
  8. CYCLOSPORINE [Concomitant]
     Active Substance: CYCLOSPORINE
     Indication: Chronic spontaneous urticaria
     Dosage: 50 MG, QD
     Dates: start: 20220923
  9. CYCLOSPORINE [Concomitant]
     Active Substance: CYCLOSPORINE
     Dosage: 25 MG, QD

REACTIONS (2)
  - Urticaria [Recovering/Resolving]
  - Oropharyngeal discomfort [Unknown]

NARRATIVE: CASE EVENT DATE: 20220901
